FAERS Safety Report 17373376 (Version 3)
Quarter: 2020Q1

REPORT INFORMATION
  Report Type: Report from Study
  Country: BR (occurrence: BR)
  Receive Date: 20200205
  Receipt Date: 20200326
  Transmission Date: 20200409
  Serious: Yes (Other)
  Sender: FDA-Public Use
  Company Number: NVSC2019BR017671

PATIENT
  Age: 73 Year
  Sex: Female

DRUGS (6)
  1. MEKINIST [Suspect]
     Active Substance: TRAMETINIB DIMETHYL SULFOXIDE
     Dosage: UNK (AROUND 28 OCT 2019)
     Route: 065
  2. TAFINLAR [Suspect]
     Active Substance: DABRAFENIB MESYLATE
     Dosage: UNK
     Route: 065
  3. TAFINLAR [Suspect]
     Active Substance: DABRAFENIB MESYLATE
     Dosage: UNK (AROUND 28 OCT 2019)
     Route: 065
  4. TAFINLAR [Suspect]
     Active Substance: DABRAFENIB MESYLATE
     Indication: PRODUCT USED FOR UNKNOWN INDICATION
     Dosage: 150 MG (12/1/2 HOURS )
     Route: 065
     Dates: start: 20191019
  5. MEKINIST [Suspect]
     Active Substance: TRAMETINIB DIMETHYL SULFOXIDE
     Indication: PRODUCT USED FOR UNKNOWN INDICATION
     Dosage: 2 MG, QD (MORNING)
     Route: 065
     Dates: start: 20191019
  6. DESLORATADIN [Suspect]
     Active Substance: DESLORATADINE
     Indication: PRODUCT USED FOR UNKNOWN INDICATION
     Dosage: UNK
     Route: 065

REACTIONS (14)
  - Recurrent cancer [Unknown]
  - White blood cell count decreased [Recovering/Resolving]
  - Nervousness [Unknown]
  - Drug hypersensitivity [Unknown]
  - Hypotension [Recovered/Resolved]
  - Urinary tract infection [Recovered/Resolved]
  - Back pain [Unknown]
  - Joint swelling [Unknown]
  - Malaise [Unknown]
  - Oxygen consumption decreased [Unknown]
  - Pyrexia [Recovered/Resolved]
  - Pigmentation disorder [Recovering/Resolving]
  - Pruritus [Not Recovered/Not Resolved]
  - Pain [Recovered/Resolved]

NARRATIVE: CASE EVENT DATE: 20191022
